FAERS Safety Report 20367520 (Version 2)
Quarter: 2022Q1

REPORT INFORMATION
  Report Type: Spontaneous
  Country: CN (occurrence: CN)
  Receive Date: 20220124
  Receipt Date: 20220221
  Transmission Date: 20220423
  Serious: Yes (Hospitalization, Other)
  Sender: FDA-Public Use
  Company Number: CN-SA-SAC20220120000685

PATIENT
  Age: 75 Year
  Sex: Female
  Weight: 47 kg

DRUGS (10)
  1. ELOXATIN [Suspect]
     Active Substance: OXALIPLATIN
     Indication: Colon cancer
     Dosage: 124 MG, QD
     Route: 041
     Dates: start: 20210409, end: 20210409
  2. RALTITREXED [Suspect]
     Active Substance: RALTITREXED
     Indication: Colon cancer
     Dosage: 4 MG
     Route: 041
     Dates: start: 20210501, end: 20211013
  3. LEUCOVORIN CALCIUM [Concomitant]
     Active Substance: LEUCOVORIN CALCIUM
     Dosage: 500 MG
     Route: 041
  4. FLUOROURACIL [Concomitant]
     Active Substance: FLUOROURACIL
     Dosage: 500 MG
     Route: 040
  5. FLUOROURACIL [Concomitant]
     Active Substance: FLUOROURACIL
     Dosage: 3500 MG, QOW
  6. BEVACIZUMAB [Concomitant]
     Active Substance: BEVACIZUMAB
     Indication: Colon cancer
     Dosage: 345 MG
     Route: 041
     Dates: start: 20210915, end: 20211111
  7. IRINOTECAN [Concomitant]
     Active Substance: IRINOTECAN
     Dosage: 160 MG
     Route: 041
  8. IRINOTECAN [Concomitant]
     Active Substance: IRINOTECAN
     Dosage: 120 MG, D8
     Route: 041
  9. XELODA [Concomitant]
     Active Substance: CAPECITABINE
  10. XELODA [Concomitant]
     Active Substance: CAPECITABINE
     Dosage: 1000 MG, BID, D1 D14, Q21D
     Route: 048

REACTIONS (3)
  - Tumour marker increased [Unknown]
  - Pulmonary toxicity [Unknown]
  - Interstitial lung disease [Unknown]
